FAERS Safety Report 9629341 (Version 7)
Quarter: 2015Q1

REPORT INFORMATION
  Report Type: Spontaneous
  Country: US (occurrence: US)
  Receive Date: 20131017
  Receipt Date: 20150316
  Transmission Date: 20150721
  Serious: Yes (Hospitalization, Other)
  Sender: FDA-Public Use
  Company Number: US-009507513-1310USA005616

PATIENT
  Sex: Female
  Weight: 52.15 kg

DRUGS (6)
  1. ALENDRONATE SODIUM. [Suspect]
     Active Substance: ALENDRONATE SODIUM
     Dosage: 70 MG, QW
     Route: 048
     Dates: start: 20050404, end: 20090515
  2. ONE-A-DAY ESSENTIAL VITAMINS [Concomitant]
     Dosage: 1 PILL, QD
     Dates: start: 1999
  3. ALENDRONATE SODIUM (+) CHOLECALCIFEROL [Suspect]
     Active Substance: ALENDRONATE SODIUM\CHOLECALCIFEROL
     Dosage: 70 MG/2800 MG, QW
     Route: 048
     Dates: start: 20070924, end: 20081002
  4. FOSAMAX [Suspect]
     Active Substance: ALENDRONATE SODIUM
     Indication: OSTEOPOROSIS
     Dosage: 70 MG, QW
     Route: 048
  5. FOSAMAX PLUS D [Suspect]
     Active Substance: ALENDRONATE SODIUM\CHOLECALCIFEROL
     Indication: OSTEOPOROSIS
     Dosage: 70 MG, UNK
     Route: 048
     Dates: start: 2006, end: 20090626
  6. OMEGA-3 MARINE TRIGLYCERIDES [Concomitant]
     Active Substance: FISH OIL
     Dosage: 1200 MG, QD
     Dates: start: 1999

REACTIONS (25)
  - Femoral neck fracture [Unknown]
  - Tricuspid valve incompetence [Unknown]
  - Medical device complication [Unknown]
  - Femur fracture [Recovered/Resolved]
  - Intramedullary rod insertion [Unknown]
  - Pain in extremity [Unknown]
  - Arthropathy [Unknown]
  - Spinal osteoarthritis [Unknown]
  - Medical device removal [Unknown]
  - Osteoarthritis [Unknown]
  - Neck pain [Unknown]
  - Femur fracture [Recovered/Resolved]
  - Nephrolithiasis [Unknown]
  - Contusion [Unknown]
  - Medical device removal [Unknown]
  - Arthritis [Unknown]
  - Sacroiliitis [Unknown]
  - Intramedullary rod insertion [Unknown]
  - Hip arthroplasty [Unknown]
  - Road traffic accident [Unknown]
  - Mitral valve incompetence [Unknown]
  - Muscle tightness [Unknown]
  - Skin abrasion [Unknown]
  - Osteoarthritis [Unknown]
  - Drug ineffective [Unknown]

NARRATIVE: CASE EVENT DATE: 20021015
